FAERS Safety Report 18306192 (Version 2)
Quarter: 2021Q1

REPORT INFORMATION
  Report Type: Other
  Country: DE (occurrence: DE)
  Receive Date: 20200924
  Receipt Date: 20210331
  Transmission Date: 20210419
  Serious: No
  Sender: FDA-Public Use
  Company Number: DE-ROCHE-2575824

PATIENT
  Age: 24 Year
  Sex: Male

DRUGS (2)
  1. OCREVUS [Suspect]
     Active Substance: OCRELIZUMAB
     Route: 042
     Dates: start: 20200305
  2. OCREVUS [Suspect]
     Active Substance: OCRELIZUMAB
     Indication: RELAPSING-REMITTING MULTIPLE SCLEROSIS
     Dosage: SECOND ADMINISTRATION IN /AUG/2019
     Route: 042
     Dates: start: 20190815

REACTIONS (3)
  - Infection susceptibility increased [Recovered/Resolved]
  - Throat irritation [Recovered/Resolved]
  - Sensation of foreign body [Recovered/Resolved]

NARRATIVE: CASE EVENT DATE: 20200315
